FAERS Safety Report 5499056-7 (Version None)
Quarter: 2007Q4

REPORT INFORMATION
  Report Type: 
  Country: None (occurrence: None)
  Receive Date: 20071026
  Receipt Date: 20070523
  Transmission Date: 20080405
  Serious: No
  Sender: FDA-Public Use
  Company Number: A0652664A

PATIENT
  Age: 66 Year
  Sex: Female

DRUGS (7)
  1. ADVAIR DISKUS 100/50 [Suspect]
     Indication: ASTHMA
     Dosage: 105MCG TWICE PER DAY
     Route: 055
     Dates: end: 20070101
  2. HYDROCHLOROTHIAZIDE [Concomitant]
  3. LOVASTATIN [Concomitant]
  4. ASPIRIN [Concomitant]
  5. QUININE SULFATE [Concomitant]
  6. TRAMADOL HCL [Concomitant]
  7. SPIRONOLACTONE [Concomitant]

REACTIONS (1)
  - DYSPHONIA [None]
